FAERS Safety Report 10579877 (Version 1)
Quarter: 2014Q4

REPORT INFORMATION
  Report Type: Spontaneous
  Country: US (occurrence: US)
  Receive Date: 20141112
  Receipt Date: 20141112
  Transmission Date: 20150529
  Serious: Yes (Hospitalization, Other)
  Sender: FDA-Public Use
  Company Number: US-GLAXOSMITHKLINE-US2014GSK020114

PATIENT
  Sex: Male

DRUGS (1)
  1. ROSIGLITAZONE [Suspect]
     Active Substance: ROSIGLITAZONE
     Indication: DIABETES MELLITUS
     Dosage: 8 MG, QD
     Dates: start: 200110, end: 200710

REACTIONS (2)
  - Acute myocardial infarction [Unknown]
  - Coronary artery disease [Unknown]
